FAERS Safety Report 10623527 (Version 1)
Quarter: 2014Q4

REPORT INFORMATION
  Report Type: Spontaneous
  Country: CN (occurrence: CN)
  Receive Date: 20141203
  Receipt Date: 20141203
  Transmission Date: 20150529
  Serious: Yes (Other)
  Sender: FDA-Public Use
  Company Number: CN-PFIZER INC-2014330087

PATIENT
  Age: 52 Year
  Sex: Female
  Weight: 57.5 kg

DRUGS (10)
  1. MOXIFLOXACIN [Suspect]
     Active Substance: MOXIFLOXACIN
     Indication: MYCOBACTERIAL INFECTION
  2. AMIKACIN [Concomitant]
     Active Substance: AMIKACIN
     Indication: LUNG DISORDER
     Dosage: UNK
     Dates: start: 20130206, end: 20130222
  3. RIFABUTIN. [Concomitant]
     Active Substance: RIFABUTIN
     Indication: MYCOBACTERIAL INFECTION
  4. ZITHROMAX [Suspect]
     Active Substance: AZITHROMYCIN DIHYDRATE
     Indication: MYCOBACTERIAL INFECTION
  5. MOXIFLOXACIN [Suspect]
     Active Substance: MOXIFLOXACIN
     Indication: LUNG DISORDER
     Dosage: UNK
     Route: 048
     Dates: start: 20130206
  6. RIFABUTIN. [Concomitant]
     Active Substance: RIFABUTIN
     Indication: LUNG DISORDER
     Dosage: UNK
     Route: 048
     Dates: start: 20130206, end: 20130222
  7. ZITHROMAX [Suspect]
     Active Substance: AZITHROMYCIN DIHYDRATE
     Indication: LUNG DISORDER
     Dosage: 0.5 G, 1X/DAY
     Route: 048
     Dates: start: 20130206, end: 20130222
  8. AMIKACIN [Concomitant]
     Active Substance: AMIKACIN
     Indication: MYCOBACTERIAL INFECTION
  9. CEFOXITIN [Concomitant]
     Active Substance: CEFOXITIN\CEFOXITIN SODIUM
     Indication: MYCOBACTERIAL INFECTION
  10. CEFOXITIN [Concomitant]
     Active Substance: CEFOXITIN\CEFOXITIN SODIUM
     Indication: LUNG DISORDER
     Dosage: UNK
     Dates: start: 20130206, end: 20130222

REACTIONS (3)
  - Hyperpyrexia [Recovering/Resolving]
  - Rash [Recovering/Resolving]
  - Pyrexia [Recovering/Resolving]

NARRATIVE: CASE EVENT DATE: 20130222
